FAERS Safety Report 9341281 (Version 1)
Quarter: 2013Q2

REPORT INFORMATION
  Report Type: Spontaneous
  Country: US (occurrence: None)
  Receive Date: 20130610
  Receipt Date: 20130610
  Transmission Date: 20140414
  Serious: No
  Sender: FDA-Public Use
  Company Number: None

PATIENT
  Age: 61 Year
  Sex: Female
  Weight: 68.49 kg

DRUGS (5)
  1. RIZATRIPTAN [Suspect]
     Indication: MIGRAINE WITHOUT AURA
     Dosage: Q2 PRN MA
     Route: 048
     Dates: start: 20130301, end: 20130415
  2. RIZATRIPTAN [Suspect]
     Indication: MIGRAINE WITH AURA
     Dosage: Q2 PRN MA
     Route: 048
     Dates: start: 20130301, end: 20130415
  3. CELEXA [Concomitant]
  4. PRAVASTATIN [Concomitant]
  5. VITAMIN D [Concomitant]

REACTIONS (2)
  - Product substitution issue [None]
  - Drug ineffective [None]
